FAERS Safety Report 10358525 (Version 7)
Quarter: 2014Q4

REPORT INFORMATION
  Report Type: Report from Study
  Country: TH (occurrence: TH)
  Receive Date: 20140801
  Receipt Date: 20141128
  Transmission Date: 20150528
  Serious: Yes (Death, Hospitalization)
  Sender: FDA-Public Use
  Company Number: TH-B.I. PHARMACEUTICALS,INC./RIDGEFIELD-2014-BI-34198BI

PATIENT
  Age: 62 Year
  Sex: Male
  Weight: 43.2 kg

DRUGS (14)
  1. PARACETAMOL [Concomitant]
     Active Substance: ACETAMINOPHEN
     Indication: PROCEDURAL PAIN
     Dosage: 1000 MG
     Route: 048
     Dates: start: 20140728
  2. BIBW 2992 [Suspect]
     Active Substance: AFATINIB
     Indication: SQUAMOUS CELL CARCINOMA OF HEAD AND NECK
     Dosage: 20 MG
     Route: 048
     Dates: start: 20140709, end: 20140721
  3. TRAMOL [Concomitant]
     Indication: PROCEDURAL PAIN
     Dosage: 50 MG
     Route: 048
     Dates: start: 20140728, end: 20140818
  4. OMEPRAZOLE. [Concomitant]
     Active Substance: OMEPRAZOLE
     Dosage: 20 MG
     Route: 048
     Dates: start: 20140625, end: 20140722
  5. BIBW 2992 [Suspect]
     Active Substance: AFATINIB
     Dosage: 20 MG
     Route: 048
     Dates: start: 20140819, end: 20140827
  6. NORMAL SALINE [Concomitant]
     Active Substance: SODIUM CHLORIDE
     Indication: DEHYDRATION
     Dosage: DOSE PER APPLICATION: 0.9% NACL; DAILY DOSE: IV RATE 100 ML/HR
     Route: 042
     Dates: start: 20140827, end: 20140827
  7. DRAMAMINE [Concomitant]
     Active Substance: DIMENHYDRINATE
     Indication: DIZZINESS
     Route: 048
     Dates: start: 20140715, end: 20140722
  8. METFORMIN [Concomitant]
     Active Substance: METFORMIN HYDROCHLORIDE
     Indication: DIABETES MELLITUS
     Dosage: 1500 MG
     Route: 048
     Dates: start: 20121201, end: 20140724
  9. METFORMIN [Concomitant]
     Active Substance: METFORMIN HYDROCHLORIDE
     Dosage: 1000 MG
     Route: 048
     Dates: start: 20140725
  10. OMEPRAZOLE. [Concomitant]
     Active Substance: OMEPRAZOLE
     Indication: DYSPEPSIA
     Dosage: 20 MG
     Route: 048
     Dates: start: 20140729
  11. METRONIDAZOLE. [Concomitant]
     Active Substance: METRONIDAZOLE
     Indication: DIARRHOEA
     Dosage: 1200 MG
     Route: 048
     Dates: start: 20140827, end: 20140902
  12. METFORMIN [Concomitant]
     Active Substance: METFORMIN HYDROCHLORIDE
     Dosage: 1500 MG
     Route: 048
     Dates: start: 20121201, end: 20140819
  13. METFORMIN [Concomitant]
     Active Substance: METFORMIN HYDROCHLORIDE
     Dosage: 500 MG
     Route: 048
  14. LOPERAMIDE [Concomitant]
     Active Substance: LOPERAMIDE
     Indication: DIARRHOEA
     Dosage: 2 MG
     Route: 048
     Dates: start: 20140618

REACTIONS (6)
  - Pneumonia [Fatal]
  - Fatigue [Recovered/Resolved]
  - Hypercalcaemia [Recovered/Resolved]
  - Empyema [Recovered/Resolved]
  - Dehydration [Recovered/Resolved]
  - Cerebral infarction [Unknown]

NARRATIVE: CASE EVENT DATE: 20140722
